FAERS Safety Report 8606334 (Version 2)
Quarter: 2013Q4

REPORT INFORMATION
  Report Type: Spontaneous
  Country: US (occurrence: US)
  Receive Date: 20120608
  Receipt Date: 20131121
  Transmission Date: 20140711
  Serious: No
  Sender: FDA-Public Use
  Company Number: US-ASTRAZENECA-2011SE28344

PATIENT
  Age: 819 Month
  Sex: Female
  Weight: 117.9 kg

DRUGS (3)
  1. PULMICORT FLEXHALER [Suspect]
     Route: 055
  2. SYMBICORT [Suspect]
     Indication: ASTHMA
     Dosage: 320 MCG, BID
     Route: 055
     Dates: start: 2009, end: 201311
  3. RHINOCORT AQUA [Suspect]
     Indication: NASAL DISCOMFORT
     Dosage: 1 SPRAY PER NOSTRIL DAILY
     Route: 045
     Dates: start: 2008

REACTIONS (5)
  - Chest discomfort [Unknown]
  - Malaise [Unknown]
  - Senile dementia [Unknown]
  - Anxiety [Unknown]
  - Intentional drug misuse [Unknown]
